FAERS Safety Report 12433232 (Version 3)
Quarter: 2017Q1

REPORT INFORMATION
  Report Type: Report from Study
  Country: US (occurrence: US)
  Receive Date: 20160603
  Receipt Date: 20170308
  Transmission Date: 20170428
  Serious: Yes (Hospitalization, Other)
  Sender: FDA-Public Use
  Company Number: US-GILEAD-2016-0216560

PATIENT
  Age: 52 Year
  Sex: Female

DRUGS (10)
  1. LISINOPRIL. [Concomitant]
     Active Substance: LISINOPRIL
  2. GABAPENTIN. [Concomitant]
     Active Substance: GABAPENTIN
  3. COUMADIN [Concomitant]
     Active Substance: WARFARIN SODIUM
  4. EFFEXOR [Concomitant]
     Active Substance: VENLAFAXINE HYDROCHLORIDE
  5. HYDROCHLOROTHIAZIDE. [Concomitant]
     Active Substance: HYDROCHLOROTHIAZIDE
  6. SILDENAFIL. [Concomitant]
     Active Substance: SILDENAFIL
  7. AMBRISENTAN [Suspect]
     Active Substance: AMBRISENTAN
     Indication: SYSTEMIC SCLERODERMA
     Dosage: 5 MG, QD
     Route: 065
     Dates: start: 20151005
  8. PROTONIX                           /00661201/ [Concomitant]
     Active Substance: OMEPRAZOLE
  9. AMBRISENTAN [Suspect]
     Active Substance: AMBRISENTAN
     Indication: PULMONARY HYPERTENSION
  10. CELLCEPT [Concomitant]
     Active Substance: MYCOPHENOLATE MOFETIL\MYCOPHENOLATE MOFETIL HYDROCHLORIDE

REACTIONS (8)
  - Off label use [Not Recovered/Not Resolved]
  - Cardiac flutter [Unknown]
  - Dyspnoea exertional [Not Recovered/Not Resolved]
  - Dizziness [Not Recovered/Not Resolved]
  - Dyspnoea [Not Recovered/Not Resolved]
  - Raynaud^s phenomenon [Unknown]
  - Central venous catheterisation [Unknown]
  - Localised infection [Unknown]

NARRATIVE: CASE EVENT DATE: 20151005
